FAERS Safety Report 19625073 (Version 1)
Quarter: 2021Q3

REPORT INFORMATION
  Report Type: Spontaneous
  Country: CA (occurrence: CA)
  Receive Date: 20210729
  Receipt Date: 20210729
  Transmission Date: 20211014
  Serious: Yes (Other)
  Sender: FDA-Public Use
  Company Number: CA-AUROBINDO-AUR-APL-2021-032113

PATIENT
  Age: 77 Year
  Sex: Female

DRUGS (1)
  1. ROSUVASTATIN. [Suspect]
     Active Substance: ROSUVASTATIN
     Indication: BLOOD CHOLESTEROL INCREASED
     Dosage: 20 MILLIGRAM, ONCE A DAY
     Route: 048

REACTIONS (11)
  - Myalgia [Unknown]
  - Arthralgia [Unknown]
  - Chromaturia [Unknown]
  - Dyspepsia [Unknown]
  - Nausea [Unknown]
  - Back pain [Unknown]
  - Chest pain [Unknown]
  - Abdominal discomfort [Unknown]
  - Dyspnoea [Unknown]
  - Traumatic lung injury [Unknown]
  - Pyrexia [Unknown]
